FAERS Safety Report 22272016 (Version 3)
Quarter: 2025Q4

REPORT INFORMATION
  Report Type: Report from Study
  Country: EU (occurrence: EU)
  Receive Date: 20230502
  Receipt Date: 20251003
  Transmission Date: 20260118
  Serious: Yes (Other)
  Sender: AUROBINDO
  Company Number: EU-JNJFOC-20230431018

PATIENT
  Age: 29 Year
  Sex: Female

DRUGS (2)
  1. DESOGESTREL\ETHINYL ESTRADIOL [Suspect]
     Active Substance: DESOGESTREL\ETHINYL ESTRADIOL
     Indication: Contraception
     Dosage: UNK(0.03MG/0.15MG)
     Route: 065
  2. JANSSEN COVID-19 VACCINE [Suspect]
     Active Substance: AD26.COV2.S
     Indication: COVID-19 prophylaxis
     Dosage: UNK DOSE 1 (FIRST DOSE)( 1 TOTAL)
     Route: 065

REACTIONS (1)
  - Acute macular neuroretinopathy [Not Recovered/Not Resolved]
